FAERS Safety Report 5278986-5 (Version None)
Quarter: 2007Q1

REPORT INFORMATION
  Report Type: 
  Country: None (occurrence: None)
  Receive Date: 20070327
  Receipt Date: 20070327
  Transmission Date: 20070707
  Serious: Yes (Other)
  Sender: FDA-Public Use
  Company Number: None

PATIENT
  Sex: Male

DRUGS (2)
  1. PLAVIX [Suspect]
  2. ASPIRIN [Suspect]

REACTIONS (2)
  - THERAPY CESSATION [None]
  - THROMBOSIS [None]
